FAERS Safety Report 6323713-3 (Version None)
Quarter: 2009Q3

REPORT INFORMATION
  Report Type: 
  Country: None (occurrence: None)
  Receive Date: 20090820
  Receipt Date: 20090811
  Transmission Date: 20100115
  Serious: Yes (Other)
  Sender: FDA-Public Use
  Company Number: 238912K09USA

PATIENT
  Age: 58 Year
  Sex: Male

DRUGS (4)
  1. REBIF [Suspect]
     Indication: MULTIPLE SCLEROSIS
     Dosage: 44 MCG, 3 IN 1 WEEKS, SUBCUTANEOUS
     Route: 058
     Dates: start: 20081208
  2. MS CONTIN [Concomitant]
     Indication: MULTIPLE SCLEROSIS
  3. MS CONTIN [Concomitant]
     Indication: SPINAL COLUMN STENOSIS
  4. PERCOCET [Concomitant]

REACTIONS (2)
  - HYPERPARATHYROIDISM [None]
  - NEPHROLITHIASIS [None]
